FAERS Safety Report 5134539-0 (Version None)
Quarter: 2006Q4

REPORT INFORMATION
  Report Type: 
  Country: None (occurrence: None)
  Receive Date: 20061025
  Receipt Date: 20061011
  Transmission Date: 20070319
  Serious: Yes (Other)
  Sender: FDA-Public Use
  Company Number: PHBS2006IT15868

PATIENT
  Age: 65 Year
  Sex: Male

DRUGS (2)
  1. IMATINIB [Suspect]
     Indication: BLAST CRISIS IN MYELOGENOUS LEUKAEMIA
     Dosage: 400 MG/D
     Route: 065
     Dates: start: 20031001
  2. HYDROXYUREA [Concomitant]
     Dosage: 1 G/D

REACTIONS (1)
  - ARRHYTHMIA [None]
